FAERS Safety Report 8531857-0 (Version None)
Quarter: 2012Q3

REPORT INFORMATION
  Report Type: 
  Country: None (occurrence: None)
  Receive Date: 20120716
  Receipt Date: 20120716
  Transmission Date: 20120928
  Serious: No
  Sender: FDA-Public Use
  Company Number: None

PATIENT
  Sex: Female
  Weight: 86.637 kg

DRUGS (2)
  1. SUBOXONE [Suspect]
     Dosage: 8 MG, 2XWEEKLY, FILM
  2. SUBOXONE [Suspect]
     Indication: DRUG DEPENDENCE
     Dosage: 8 MG, TID, PO
     Route: 048
     Dates: start: 20120605

REACTIONS (1)
  - MUSCLE TWITCHING [None]
